FAERS Safety Report 9737694 (Version 1)
Quarter: 2013Q4

REPORT INFORMATION
  Report Type: Spontaneous
  Country: NL (occurrence: NL)
  Receive Date: 20131207
  Receipt Date: 20131207
  Transmission Date: 20140711
  Serious: Yes (Death)
  Sender: FDA-Public Use
  Company Number: NL-009507513-1312NLD003390

PATIENT
  Sex: Male

DRUGS (1)
  1. NUVARING [Suspect]
     Dosage: UNK

REACTIONS (1)
  - Completed suicide [Fatal]
